FAERS Safety Report 5130788-6 (Version None)
Quarter: 2006Q4

REPORT INFORMATION
  Report Type: 
  Country: None (occurrence: None)
  Receive Date: 20061019
  Receipt Date: 20061017
  Transmission Date: 20070319
  Serious: Yes (Life-Threatening)
  Sender: FDA-Public Use
  Company Number: AU-BRISTOL-MYERS SQUIBB COMPANY-13544739

PATIENT
  Age: 56 Year
  Sex: Female

DRUGS (2)
  1. AVAPRO [Suspect]
  2. GAVISCON [Suspect]
     Route: 048
     Dates: start: 20050515, end: 20050515

REACTIONS (6)
  - DYSPHONIA [None]
  - DYSPNOEA [None]
  - PHARYNGEAL OEDEMA [None]
  - PRURITUS [None]
  - RASH ERYTHEMATOUS [None]
  - TONGUE OEDEMA [None]
